FAERS Safety Report 14908351 (Version 2)
Quarter: 2018Q3

REPORT INFORMATION
  Report Type: Spontaneous
  Country: US (occurrence: US)
  Receive Date: 20180517
  Receipt Date: 20180801
  Transmission Date: 20181010
  Serious: Yes (Hospitalization)
  Sender: FDA-Public Use
  Company Number: US-BAYER-2018-088366

PATIENT
  Age: 55 Year
  Sex: Female

DRUGS (1)
  1. RIOCIGUAT (GUANYLATE CYCLASE STIMULATOR) [Suspect]
     Active Substance: RIOCIGUAT
     Indication: PORTOPULMONARY HYPERTENSION
     Dosage: UNK

REACTIONS (3)
  - Hypoxia [None]
  - Respiratory disorder [None]
  - Hepatopulmonary syndrome [None]
